FAERS Safety Report 4552790-5 (Version None)
Quarter: 2005Q1

REPORT INFORMATION
  Report Type: 
  Country: None (occurrence: None)
  Receive Date: 20050114
  Receipt Date: 20041028
  Transmission Date: 20050727
  Serious: Yes (Hospitalization)
  Sender: FDA-Public Use
  Company Number: US-ROCHE-384954

PATIENT
  Sex: Female

DRUGS (4)
  1. PEGASYS [Suspect]
     Indication: DRUG USE FOR UNKNOWN INDICATION
     Route: 065
     Dates: start: 20040827
  2. PEGASYS [Suspect]
     Route: 065
  3. COPEGUS [Suspect]
     Indication: DRUG USE FOR UNKNOWN INDICATION
     Route: 048
     Dates: start: 20040827
  4. COPEGUS [Suspect]
     Route: 048
     Dates: start: 20041115

REACTIONS (14)
  - ARTHRALGIA [None]
  - BLOOD DISORDER [None]
  - CHEST PAIN [None]
  - HAEMOGLOBIN DECREASED [None]
  - INFECTION [None]
  - NAUSEA [None]
  - PAIN [None]
  - PAIN IN EXTREMITY [None]
  - PLATELET COUNT DECREASED [None]
  - PRODUCTIVE COUGH [None]
  - PYREXIA [None]
  - RED BLOOD CELL COUNT DECREASED [None]
  - SPUTUM DISCOLOURED [None]
  - WHITE BLOOD CELL COUNT DECREASED [None]
